FAERS Safety Report 9683878 (Version 3)
Quarter: 2014Q2

REPORT INFORMATION
  Report Type: Report from Study
  Country: GB (occurrence: GB)
  Receive Date: 20131112
  Receipt Date: 20140404
  Transmission Date: 20141212
  Serious: Yes (Death)
  Sender: FDA-Public Use
  Company Number: GB-ROCHE-1302298

PATIENT
  Age: 80 Year
  Sex: Male

DRUGS (6)
  1. RANIBIZUMAB [Suspect]
     Indication: PRODUCT USED FOR UNKNOWN INDICATION
     Route: 050
     Dates: start: 20130204
  2. RANIBIZUMAB [Suspect]
     Route: 050
     Dates: start: 20130718, end: 20130718
  3. LORATADINE [Concomitant]
     Route: 065
     Dates: start: 20120717
  4. SIMVASTATIN [Concomitant]
     Route: 065
     Dates: start: 20110131
  5. QUININE BISULFATE [Concomitant]
     Route: 065
     Dates: start: 20100120
  6. LACIDIPINE [Concomitant]
     Route: 065
     Dates: start: 20130129

REACTIONS (1)
  - Cerebral haemorrhage [Fatal]
